FAERS Safety Report 9265472 (Version 4)
Quarter: 2014Q2

REPORT INFORMATION
  Report Type: Spontaneous
  Country: US (occurrence: US)
  Receive Date: 20130501
  Receipt Date: 20140515
  Transmission Date: 20141212
  Serious: Yes (Hospitalization, Other)
  Sender: FDA-Public Use
  Company Number: US-009507513-1304USA015563

PATIENT
  Sex: Male

DRUGS (2)
  1. PROPECIA [Suspect]
     Indication: ALOPECIA
     Dosage: UNK
     Route: 048
     Dates: start: 20040316, end: 200607
  2. FINASTERIDE [Suspect]
     Dosage: 1 MG, QD
     Route: 048

REACTIONS (13)
  - Pancreaticoduodenectomy [Unknown]
  - Erectile dysfunction [Not Recovered/Not Resolved]
  - Anxiety [Not Recovered/Not Resolved]
  - Conjunctivitis allergic [Unknown]
  - Vision blurred [Not Recovered/Not Resolved]
  - Blood insulin decreased [Unknown]
  - Varicocele [Unknown]
  - Testicular atrophy [Unknown]
  - Spermatozoa abnormal [Unknown]
  - Depression [Not Recovered/Not Resolved]
  - Semen volume decreased [Not Recovered/Not Resolved]
  - Infertility [Not Recovered/Not Resolved]
  - Sexual dysfunction [Not Recovered/Not Resolved]
